FAERS Safety Report 7794946-4 (Version None)
Quarter: 2011Q4

REPORT INFORMATION
  Report Type: 
  Country: None (occurrence: None)
  Receive Date: 20111004
  Receipt Date: 20110927
  Transmission Date: 20120403
  Serious: Yes (Other)
  Sender: FDA-Public Use
  Company Number: FR-TEVA-300203ISR

PATIENT
  Sex: Female

DRUGS (4)
  1. TRIPTAN (NOS) [Concomitant]
  2. CHLORMADINONE ACETATE TAB [Concomitant]
     Indication: DYSMENORRHOEA
     Dosage: 1 DOSAGE FORMS;
     Route: 048
     Dates: start: 20100201
  3. PROPRANOLOL [Suspect]
     Indication: MIGRAINE
     Dosage: 80 MILLIGRAM;
     Route: 048
     Dates: start: 20110814
  4. CHLORMADINONE ACETATE TAB [Concomitant]
     Indication: MIGRAINE

REACTIONS (2)
  - POLLAKIURIA [None]
  - OFF LABEL USE [None]
